FAERS Safety Report 5558271-4 (Version None)
Quarter: 2007Q4

REPORT INFORMATION
  Report Type: 
  Country: None (occurrence: None)
  Receive Date: 20071214
  Receipt Date: 20071204
  Transmission Date: 20080405
  Serious: Yes (Other)
  Sender: FDA-Public Use
  Company Number: PL-PFIZER INC-2007098728

PATIENT
  Sex: Male

DRUGS (8)
  1. SORTIS [Suspect]
     Route: 048
  2. LOSARTAN POTASSIUM [Concomitant]
     Route: 048
  3. NORVASC [Concomitant]
     Route: 048
  4. DILATREND [Concomitant]
     Dosage: TEXT:6.25
     Route: 048
  5. MILURIT [Concomitant]
     Route: 048
  6. FUROSEMIDE [Concomitant]
     Route: 048
  7. CONTROLOC [Concomitant]
     Dosage: TEXT:40
     Route: 048
  8. DUSPATALIN ^DUPHAR^ [Concomitant]
     Route: 048

REACTIONS (12)
  - ALBUMIN URINE PRESENT [None]
  - ARTHRALGIA [None]
  - BLOOD PARATHYROID HORMONE INCREASED [None]
  - BONE PAIN [None]
  - FISTULA [None]
  - FLATULENCE [None]
  - GASTRITIS [None]
  - HAEMORRHAGE [None]
  - MALAISE [None]
  - MYCOTOXICOSIS [None]
  - RENAL DISORDER [None]
  - THYROID ADENOMA [None]
